FAERS Safety Report 5225348-2 (Version None)
Quarter: 2007Q1

REPORT INFORMATION
  Report Type: 
  Country: None (occurrence: None)
  Receive Date: 20070131
  Receipt Date: 20061109
  Transmission Date: 20070707
  Serious: Yes (Hospitalization)
  Sender: FDA-Public Use
  Company Number: US-AMGEN-US198964

PATIENT
  Age: 64 Year
  Sex: Male

DRUGS (8)
  1. VECTIBIX [Suspect]
     Indication: COLORECTAL CANCER
     Route: 042
     Dates: start: 20061026, end: 20061026
  2. FLUOROURACIL [Concomitant]
     Route: 065
     Dates: start: 20050801
  3. IRINOTECAN [Concomitant]
     Route: 065
     Dates: start: 20050801
  4. LEUCOVORIN CALCIUM [Concomitant]
     Route: 065
     Dates: start: 20061001
  5. OXALIPLATIN [Concomitant]
     Route: 065
     Dates: start: 20061001
  6. COZAAR [Concomitant]
     Route: 048
  7. ACIPHEX [Concomitant]
     Route: 065
  8. LIPITOR [Concomitant]
     Route: 065

REACTIONS (1)
  - INFUSION RELATED REACTION [None]
